FAERS Safety Report 26206429 (Version 1)
Quarter: 2025Q4

REPORT INFORMATION
  Report Type: Spontaneous
  Country: US (occurrence: US)
  Receive Date: 20251229
  Receipt Date: 20251229
  Transmission Date: 20260117
  Serious: Yes (Other)
  Sender: SPECGX
  Company Number: US-SPECGX-T202502034

PATIENT
  Age: 57 Year
  Sex: Male

DRUGS (3)
  1. POSACONAZOLE [Suspect]
     Active Substance: POSACONAZOLE
     Indication: Mucormycosis
     Dosage: UNK
     Route: 048
  2. AMPHOTERICIN B [Suspect]
     Active Substance: AMPHOTERICIN B
     Indication: Mucormycosis
     Dosage: UNK
     Route: 065
  3. POSACONAZOLE [Suspect]
     Active Substance: POSACONAZOLE
     Indication: Mucormycosis
     Dosage: UNK
     Route: 042

REACTIONS (6)
  - Cardiogenic shock [Unknown]
  - Renal tubular necrosis [Unknown]
  - Cardiomyopathy [Unknown]
  - Aspergillus infection [Unknown]
  - Drug level below therapeutic [Unknown]
  - Product use in unapproved indication [Unknown]
